FAERS Safety Report 5823202-6 (Version None)
Quarter: 2008Q3

REPORT INFORMATION
  Report Type: 
  Country: None (occurrence: None)
  Receive Date: 20080725
  Receipt Date: 20080717
  Transmission Date: 20090109
  Serious: Yes (Disabling)
  Sender: FDA-Public Use
  Company Number: DE-JNJFOC-20080704489

PATIENT
  Age: 58 Year
  Sex: Male

DRUGS (4)
  1. TAVANIC [Suspect]
     Indication: BRONCHITIS BACTERIAL
     Route: 048
  2. FORMOTEROL FUMARATE [Concomitant]
     Indication: CHRONIC OBSTRUCTIVE PULMONARY DISEASE
     Route: 055
  3. SERETIDE [Concomitant]
     Indication: CHRONIC OBSTRUCTIVE PULMONARY DISEASE
     Route: 055
  4. SPIRIVA [Concomitant]
     Indication: CHRONIC OBSTRUCTIVE PULMONARY DISEASE
     Route: 055

REACTIONS (3)
  - MUSCLE ATROPHY [None]
  - OEDEMA [None]
  - TENDON PAIN [None]
